FAERS Safety Report 23764661 (Version 2)
Quarter: 2024Q2

REPORT INFORMATION
  Report Type: Report from Study
  Country: CO (occurrence: CO)
  Receive Date: 20240420
  Receipt Date: 20240520
  Transmission Date: 20240716
  Serious: Yes (Hospitalization, Other)
  Sender: FDA-Public Use
  Company Number: CO-JNJFOC-20240350892

PATIENT
  Age: 61 Year
  Sex: Female
  Weight: 66 kg

DRUGS (3)
  1. SELEXIPAG [Suspect]
     Active Substance: SELEXIPAG
     Indication: Pulmonary arterial hypertension
     Route: 048
     Dates: start: 20240213
  2. SELEXIPAG [Suspect]
     Active Substance: SELEXIPAG
     Route: 048
     Dates: start: 20240213, end: 20240425
  3. SELEXIPAG [Suspect]
     Active Substance: SELEXIPAG
     Route: 048

REACTIONS (5)
  - Diarrhoea [Recovering/Resolving]
  - Peripheral swelling [Recovering/Resolving]
  - Inflammation [Not Recovered/Not Resolved]
  - Dyspepsia [Not Recovered/Not Resolved]
  - Fluid retention [Not Recovered/Not Resolved]

NARRATIVE: CASE EVENT DATE: 20240201
